FAERS Safety Report 11266183 (Version 2)
Quarter: 2016Q1

REPORT INFORMATION
  Report Type: Spontaneous
  Country: JP (occurrence: JP)
  Receive Date: 20150713
  Receipt Date: 20160208
  Transmission Date: 20160525
  Serious: Yes (Life-Threatening, Other)
  Sender: FDA-Public Use
  Company Number: JP-BRISTOL-MYERS SQUIBB COMPANY-BMS-2015-045905

PATIENT
  Age: 81 Year
  Sex: Male
  Weight: 52.5 kg

DRUGS (1)
  1. ELIQUIS [Suspect]
     Active Substance: APIXABAN
     Indication: ATRIAL FIBRILLATION
     Dosage: 2.5 MG, BID
     Route: 048
     Dates: start: 20150510, end: 20150525

REACTIONS (5)
  - Haemorrhage [Recovered/Resolved]
  - Renal impairment [Unknown]
  - Cardiac failure [Unknown]
  - Haemothorax [Recovered/Resolved]
  - Dialysis [Unknown]

NARRATIVE: CASE EVENT DATE: 20150602
